FAERS Safety Report 8354310-6 (Version None)
Quarter: 2012Q2

REPORT INFORMATION
  Report Type: 
  Country: None (occurrence: None)
  Receive Date: 20120511
  Receipt Date: 20120426
  Transmission Date: 20120825
  Serious: Yes (Hospitalization)
  Sender: FDA-Public Use
  Company Number: US-ROCHE-1063843

PATIENT
  Age: 59 Year
  Sex: Male

DRUGS (1)
  1. VALIUM [Suspect]
     Indication: MUSCLE SPASMS

REACTIONS (6)
  - THERAPEUTIC RESPONSE DECREASED [None]
  - NERVE COMPRESSION [None]
  - PAIN [None]
  - RUPTURED CEREBRAL ANEURYSM [None]
  - HEADACHE [None]
  - MALAISE [None]
